FAERS Safety Report 13175848 (Version 1)
Quarter: 2017Q1

REPORT INFORMATION
  Report Type: Spontaneous
  Country: US (occurrence: US)
  Receive Date: 20170201
  Receipt Date: 20170201
  Transmission Date: 20170428
  Serious: Yes (Hospitalization)
  Sender: FDA-Public Use
  Company Number: US-JNJFOC-20170122883

PATIENT
  Age: 74 Year
  Sex: Male
  Weight: 82.1 kg

DRUGS (18)
  1. DILTIAZEM HCL [Concomitant]
     Active Substance: DILTIAZEM HYDROCHLORIDE
     Dosage: CAPSULE EXTENDED RELEASE 24 HOUR 1 CAPSULE ONCE A DAY
     Route: 065
  2. AMIODARONE HCL [Concomitant]
     Active Substance: AMIODARONE HYDROCHLORIDE
     Dosage: 200 TABLET
     Route: 048
  3. FOLIC ACID. [Concomitant]
     Active Substance: FOLIC ACID
     Route: 065
  4. CARVEDILOL. [Concomitant]
     Active Substance: CARVEDILOL
     Dosage: WITH FOOD TWICE A DAY
     Route: 065
  5. LYRICA [Concomitant]
     Active Substance: PREGABALIN
     Route: 065
  6. PERCOCET [Concomitant]
     Active Substance: ACETAMINOPHEN\OXYCODONE HYDROCHLORIDE
     Dosage: 5-325 MG TABLET 1 TABLET AS NEEDED EVERY 6 HRS
     Route: 065
  7. LUNESTA [Concomitant]
     Active Substance: ESZOPICLONE
     Dosage: TABLET IMMEDIATELY BEFORE BEDTIME ONCE A DAY
     Route: 065
  8. METFORMIN HCL [Concomitant]
     Active Substance: METFORMIN HYDROCHLORIDE
     Route: 065
  9. XARELTO [Suspect]
     Active Substance: RIVAROXABAN
     Indication: ATRIAL FIBRILLATION
     Route: 048
  10. INSULIN LISPRO [Concomitant]
     Active Substance: INSULIN LISPRO
     Dosage: 100 UNIT/ML SOLUTION PEN-INJECTOR 3 UNITS BEFORE MEALS
     Route: 065
  11. MELATONIN [Concomitant]
     Active Substance: MELATONIN
     Indication: INSOMNIA
     Dosage: 1 TABLET AT BEDTIME AS NEEDED WITH FOOD AT HS PRN
     Route: 065
  12. XARELTO [Suspect]
     Active Substance: RIVAROXABAN
     Indication: CEREBROVASCULAR ACCIDENT PROPHYLAXIS
     Route: 048
  13. PROZAC [Concomitant]
     Active Substance: FLUOXETINE HYDROCHLORIDE
     Dosage: 1 CAPSULE IN THE MORNING BID
     Route: 065
  14. ALBUTEROL SULFATE. [Concomitant]
     Active Substance: ALBUTEROL SULFATE
     Dosage: 108 (90 BASE) MCG/ACT AEROSOL SOLUTION 2 PUFFS AS NEEDED EVERY 4 HRS
     Route: 065
  15. GABAPENTIN. [Concomitant]
     Active Substance: GABAPENTIN
     Dosage: 1 CAPSULE 1 CAPSULE IN THE MORNING AND 2 AT BED LIME
     Route: 065
  16. COLACE [Concomitant]
     Active Substance: DOCUSATE SODIUM
     Route: 065
  17. PHYTONADIONE. [Concomitant]
     Active Substance: PHYTONADIONE
     Route: 065
  18. PRAVASTATIN SODIUM. [Concomitant]
     Active Substance: PRAVASTATIN SODIUM
     Indication: HYPERLIPIDAEMIA
     Route: 065

REACTIONS (1)
  - Small cell lung cancer [Unknown]

NARRATIVE: CASE EVENT DATE: 201601
